FAERS Safety Report 6329066-9 (Version None)
Quarter: 2009Q3

REPORT INFORMATION
  Report Type: 
  Country: None (occurrence: None)
  Receive Date: 20090826
  Receipt Date: 20090820
  Transmission Date: 20100115
  Serious: Yes (Hospitalization, Other)
  Sender: FDA-Public Use
  Company Number: PHEH2009US09711

PATIENT
  Sex: Female

DRUGS (12)
  1. RECLAST [Suspect]
     Indication: OSTEOPOROSIS
     Dosage: 5 MG
     Dates: start: 20090626
  2. CRESTOR [Concomitant]
  3. AMITRIPTYLINE [Concomitant]
  4. METOPROLOL [Concomitant]
  5. GLIMEPIRIDE [Concomitant]
  6. AVAPRO [Concomitant]
     Indication: BLOOD PRESSURE
     Route: 048
  7. MAGNESIUM [Concomitant]
     Route: 048
  8. PRILOSEC [Concomitant]
     Indication: GASTROOESOPHAGEAL REFLUX DISEASE
  9. INSULIN [Concomitant]
     Indication: TYPE 2 DIABETES MELLITUS
  10. METFORMIN HCL [Concomitant]
     Route: 048
  11. PLAVIX [Concomitant]
     Route: 048
  12. HYDROCHLOROTHIAZIDE [Concomitant]
     Indication: BLOOD PRESSURE
     Route: 048

REACTIONS (3)
  - CONFUSIONAL STATE [None]
  - MENTAL STATUS CHANGES [None]
  - PULMONARY OEDEMA [None]
